FAERS Safety Report 8276137-6 (Version None)
Quarter: 2012Q2

REPORT INFORMATION
  Report Type: 
  Country: None (occurrence: None)
  Receive Date: 20120406
  Receipt Date: 20120330
  Transmission Date: 20120825
  Serious: Yes (Other)
  Sender: FDA-Public Use
  Company Number: 2012SP007252

PATIENT
  Sex: Female

DRUGS (3)
  1. VICTRELIS [Suspect]
     Indication: HEPATITIS C
     Dates: start: 20111111, end: 20120203
  2. PEGASYS [Suspect]
     Indication: HEPATITIS C
     Dates: start: 20111014, end: 20120203
  3. RIBAVIRIN [Suspect]
     Indication: HEPATITIS C
     Dates: start: 20111014, end: 20120203

REACTIONS (5)
  - PNEUMONIA [None]
  - DEHYDRATION [None]
  - CHROMATURIA [None]
  - DYSGEUSIA [None]
  - ABDOMINAL DISCOMFORT [None]
